FAERS Safety Report 10042902 (Version 1)
Quarter: 2014Q1

REPORT INFORMATION
  Report Type: Spontaneous
  Country: GB (occurrence: GB)
  Receive Date: 20140328
  Receipt Date: 20140328
  Transmission Date: 20141002
  Serious: Yes (Hospitalization, Other)
  Sender: FDA-Public Use
  Company Number: 2014SP001757

PATIENT
  Age: 77 Year
  Sex: Female

DRUGS (5)
  1. DEXAMETHASONE [Suspect]
     Indication: RADIOTHERAPY
     Route: 051
     Dates: start: 201401
  2. DEXAMETHASONE [Suspect]
     Indication: RADIOTHERAPY
     Route: 051
  3. BETAHISTINE [Concomitant]
  4. LAMOTRIGINE [Concomitant]
  5. PARACETAMOL [Concomitant]

REACTIONS (1)
  - Diabetes mellitus [Recovering/Resolving]
